FAERS Safety Report 24989674 (Version 1)
Quarter: 2025Q1

REPORT INFORMATION
  Report Type: Spontaneous
  Country: TR (occurrence: TR)
  Receive Date: 20250220
  Receipt Date: 20250220
  Transmission Date: 20250409
  Serious: Yes (Hospitalization)
  Sender: ACCORD
  Company Number: TR-Accord-470088

PATIENT
  Age: 6 Year
  Sex: Female
  Weight: 25 kg

DRUGS (8)
  1. HYDROXYCHLOROQUINE [Suspect]
     Active Substance: HYDROXYCHLOROQUINE
     Indication: Pulmonary haemosiderosis
  2. METHYLPREDNISOLONE [Concomitant]
     Active Substance: METHYLPREDNISOLONE
     Indication: Pulmonary haemosiderosis
  3. CLARITHROMYCIN [Concomitant]
     Active Substance: CLARITHROMYCIN
     Indication: Pulmonary haemosiderosis
  4. CEFTRIAXONE [Concomitant]
     Active Substance: CEFTRIAXONE
     Indication: Pulmonary haemosiderosis
  5. HYDROXYCHLOROQUINE [Suspect]
     Active Substance: HYDROXYCHLOROQUINE
     Indication: Pulmonary haemosiderosis
     Dosage: 4MG/KG/D
  6. HYDROXYCHLOROQUINE [Suspect]
     Active Substance: HYDROXYCHLOROQUINE
     Indication: Pulmonary haemosiderosis
  7. CLARITHROMYCIN [Concomitant]
     Active Substance: CLARITHROMYCIN
     Indication: Pulmonary haemosiderosis
  8. CEFTRIAXONE [Concomitant]
     Active Substance: CEFTRIAXONE
     Indication: Pulmonary haemosiderosis

REACTIONS (7)
  - Restlessness [Recovered/Resolved]
  - Agitation [Recovered/Resolved]
  - Prosopagnosia [Recovered/Resolved]
  - Diplopia [Recovered/Resolved]
  - Myoclonus [Recovered/Resolved]
  - Neuropsychological symptoms [Recovered/Resolved]
  - Confusional state [Recovered/Resolved]
